FAERS Safety Report 23024170 (Version 1)
Quarter: 2023Q4

REPORT INFORMATION
  Report Type: Spontaneous
  Country: CN (occurrence: CN)
  Receive Date: 20231004
  Receipt Date: 20231004
  Transmission Date: 20240109
  Serious: Yes (Hospitalization)
  Sender: FDA-Public Use
  Company Number: CN-NOVOPROD-1110751

PATIENT
  Age: 66 Year
  Sex: Male
  Weight: 62.5 kg

DRUGS (6)
  1. NOVORAPID [Suspect]
     Active Substance: INSULIN ASPART
     Indication: Type 2 diabetes mellitus
     Dosage: 8 IU, TID(8 U IN THE MORNING, 8 U AT NOON AND 8 U IN THE EVENING)
     Dates: start: 20230620
  2. NOVORAPID [Suspect]
     Active Substance: INSULIN ASPART
     Dosage: 8 IU, TID(8 U IN THE MORNING, 8 U AT NOON AND 8 U IN THE EVENING)
  3. NOVORAPID [Suspect]
     Active Substance: INSULIN ASPART
     Dosage: UNKNOWN (DOSE INCREASED BY 2 U)
  4. INSULIN DETEMIR [Suspect]
     Active Substance: INSULIN DETEMIR
     Dosage: 10 U-12 U BEFORE SLEEP
  5. INSULIN DETEMIR [Suspect]
     Active Substance: INSULIN DETEMIR
     Indication: Type 2 diabetes mellitus
     Dosage: 10 U-12 U BEFORE SLEEP
     Dates: start: 20230620
  6. INSULIN DETEMIR [Suspect]
     Active Substance: INSULIN DETEMIR
     Dosage: UNKNOWN (DOSE INCREASED BY 2 U)

REACTIONS (3)
  - Ketoacidosis [Unknown]
  - Blood glucose increased [Unknown]
  - Blood glucose increased [Unknown]
